FAERS Safety Report 6737497-8 (Version None)
Quarter: 2010Q2

REPORT INFORMATION
  Report Type: 
  Country: None (occurrence: None)
  Receive Date: 20100524
  Receipt Date: 20090313
  Transmission Date: 20101027
  Serious: Yes (Other)
  Sender: FDA-Public Use
  Company Number: FR-BAYER-201025393GPV

PATIENT
  Age: 52 Year
  Sex: Female

DRUGS (1)
  1. BETAFERON [Suspect]
     Indication: MULTIPLE SCLEROSIS
     Dates: start: 19990101

REACTIONS (4)
  - GAIT DISTURBANCE [None]
  - INJECTION SITE REACTION [None]
  - MUSCLE ATROPHY [None]
  - MYALGIA [None]
